FAERS Safety Report 6994546-X (Version None)
Quarter: 2010Q3

REPORT INFORMATION
  Report Type: 
  Country: None (occurrence: None)
  Receive Date: 20100917
  Receipt Date: 20100913
  Transmission Date: 20110219
  Serious: Yes (Hospitalization)
  Sender: FDA-Public Use
  Company Number: GB-AMGEN-KDC426400

PATIENT
  Sex: Male

DRUGS (15)
  1. VECTIBIX [Suspect]
     Indication: GASTROOESOPHAGEAL CANCER
  2. EPIRUBICIN [Suspect]
  3. OXALIPLATIN [Suspect]
  4. CAPECITABINE [Suspect]
  5. GAVISCON [Concomitant]
     Dates: start: 20100701
  6. CHLORPHENIRAMINE MALEATE [Concomitant]
     Route: 048
     Dates: start: 20100701
  7. LORAZEPAM [Concomitant]
     Route: 048
     Dates: start: 20100701
  8. ACETAMINOPHEN [Concomitant]
     Route: 048
     Dates: start: 20100701
  9. DIHYDROCODEINE [Concomitant]
     Dates: end: 20100711
  10. LANSOPRAZOLE [Concomitant]
  11. NULYTELY [Concomitant]
  12. AMITRIPTYLINE HCL [Concomitant]
  13. TEMAZEPAM [Concomitant]
  14. DEXAMETHASONE [Concomitant]
     Dates: start: 20100311
  15. DOCUSATE [Concomitant]

REACTIONS (4)
  - GENERAL SYMPTOM [None]
  - INFECTION [None]
  - PRURITUS [None]
  - RASH MACULO-PAPULAR [None]
